FAERS Safety Report 11989096 (Version 1)
Quarter: 2016Q1

REPORT INFORMATION
  Report Type: Spontaneous
  Country: US (occurrence: US)
  Receive Date: 20160202
  Receipt Date: 20160202
  Transmission Date: 20160526
  Serious: No
  Sender: FDA-Public Use
  Company Number: US-MALLINCKRODT-T201600177

PATIENT
  Sex: Male
  Weight: 28.12 kg

DRUGS (2)
  1. DEXTROAMPHETAMINE SULFATE. [Suspect]
     Active Substance: DEXTROAMPHETAMINE SULFATE
     Indication: ATTENTION DEFICIT/HYPERACTIVITY DISORDER
     Dosage: 1.5 TABLETS (7.5MG) AT 8AM AND NOON
     Route: 048
     Dates: start: 2014
  2. MELATONIN [Concomitant]
     Active Substance: MELATONIN
     Dosage: UNK, QHS

REACTIONS (4)
  - Drug dose omission [Not Recovered/Not Resolved]
  - Irritability [Not Recovered/Not Resolved]
  - Fatigue [Not Recovered/Not Resolved]
  - Disturbance in attention [Not Recovered/Not Resolved]
